FAERS Safety Report 5750904-2 (Version None)
Quarter: 2008Q2

REPORT INFORMATION
  Report Type: 
  Country: None (occurrence: None)
  Receive Date: 20080528
  Receipt Date: 20080516
  Transmission Date: 20081010
  Serious: Yes (Death)
  Sender: FDA-Public Use
  Company Number: FI-ROCHE-564974

PATIENT
  Sex: Female

DRUGS (2)
  1. XELODA [Suspect]
     Route: 048
  2. DOCETAXEL [Concomitant]

REACTIONS (4)
  - DISEASE PROGRESSION [None]
  - LUNG DISORDER [None]
  - LUNG INFECTION [None]
  - METASTATIC NEOPLASM [None]
